FAERS Safety Report 14914123 (Version 1)
Quarter: 2018Q2

REPORT INFORMATION
  Report Type: Spontaneous
  Country: US (occurrence: US)
  Receive Date: 20180518
  Receipt Date: 20180518
  Transmission Date: 20180711
  Serious: No
  Sender: FDA-Public Use
  Company Number: US-TEVA-2018-US-891967

PATIENT
  Sex: Male

DRUGS (1)
  1. GUANFACINE. [Suspect]
     Active Substance: GUANFACINE
     Route: 065

REACTIONS (3)
  - Oppositional defiant disorder [Unknown]
  - Attention deficit/hyperactivity disorder [Unknown]
  - Drug ineffective [Unknown]
